FAERS Safety Report 18335106 (Version 3)
Quarter: 2020Q4

REPORT INFORMATION
  Report Type: Spontaneous
  Country: JP (occurrence: JP)
  Receive Date: 20201001
  Receipt Date: 20201106
  Transmission Date: 20210113
  Serious: Yes (Other)
  Sender: FDA-Public Use
  Company Number: JP-MALLINCKRODT-T202004783

PATIENT

DRUGS (5)
  1. FENTANYL CITRATE. [Concomitant]
     Active Substance: FENTANYL CITRATE
     Indication: PROCEDURAL PAIN
     Dosage: 2-5 ML/H, 1 ?G/ML
     Route: 008
  2. ROPIVACAINE HYDROCHLORIDE MONOHYDRATE [Concomitant]
     Active Substance: ROPIVACAINE HYDROCHLORIDE
     Indication: PROCEDURAL PAIN
     Dosage: 2-5 ML/H
     Route: 008
  3. ROPIVACAINE HYDROCHLORIDE MONOHYDRATE [Concomitant]
     Active Substance: ROPIVACAINE HYDROCHLORIDE
     Dosage: 20 MILLILITER. (0.25%)
     Route: 008
  4. OFIRMEV [Suspect]
     Active Substance: ACETAMINOPHEN
     Dosage: 500 MILLIGRAM, Q8H (ORALLY OR ENTERALLY)
     Route: 065
     Dates: start: 201508
  5. OFIRMEV [Suspect]
     Active Substance: ACETAMINOPHEN
     Indication: PROCEDURAL PAIN
     Dosage: 1000 MILLIGRAM, Q6H
     Route: 042
     Dates: start: 201508, end: 201508

REACTIONS (3)
  - Hepatic enzyme increased [Unknown]
  - Blood creatinine increased [Unknown]
  - Hepatic function abnormal [Unknown]
